FAERS Safety Report 7134108-7 (Version None)
Quarter: 2010Q4

REPORT INFORMATION
  Report Type: 
  Country: None (occurrence: None)
  Receive Date: 20101117
  Receipt Date: 20101102
  Transmission Date: 20110411
  Serious: Yes (Other)
  Sender: FDA-Public Use
  Company Number: 011716

PATIENT

DRUGS (3)
  1. BUSULFEX [Suspect]
  2. FLUDARABINE PHOSPHATE [Concomitant]
  3. ATG (ANTILYMPHOCYTE IMMUNOGLOBULIN (HORSE)) [Concomitant]

REACTIONS (3)
  - EPSTEIN-BARR VIRUS INFECTION [None]
  - TRANSPLANT REJECTION [None]
  - VENOOCCLUSIVE DISEASE [None]
